FAERS Safety Report 15265328 (Version 2)
Quarter: 2018Q4

REPORT INFORMATION
  Report Type: Spontaneous
  Country: US (occurrence: US)
  Receive Date: 20180810
  Receipt Date: 20181023
  Transmission Date: 20190204
  Serious: No
  Sender: FDA-Public Use
  Company Number: US-MELINTA-US-MLNT-18-00263

PATIENT
  Age: 46 Year
  Sex: Male
  Weight: 110.05 kg

DRUGS (1)
  1. ORBACTIV [Suspect]
     Active Substance: ORITAVANCIN
     Indication: PRODUCT USED FOR UNKNOWN INDICATION
     Dosage: NOT PROVIDED
     Route: 041
     Dates: start: 20180728, end: 20180728

REACTIONS (1)
  - Vascular access site rupture [Recovered/Resolved]

NARRATIVE: CASE EVENT DATE: 20180728
